FAERS Safety Report 7985698-3 (Version None)
Quarter: 2011Q4

REPORT INFORMATION
  Report Type: 
  Country: None (occurrence: None)
  Receive Date: 20111216
  Receipt Date: 20111216
  Transmission Date: 20120403
  Serious: Yes (Other)
  Sender: FDA-Public Use
  Company Number: None

PATIENT
  Age: 53 Year
  Sex: Female
  Weight: 54.884 kg

DRUGS (2)
  1. VIIBRYD [Suspect]
     Indication: ANXIETY
     Dosage: 40 MG
     Route: 048
     Dates: start: 20111026, end: 20111212
  2. VIIBRYD [Suspect]
     Indication: DEPRESSION
     Dosage: 40 MG
     Route: 048
     Dates: start: 20111026, end: 20111212

REACTIONS (16)
  - PARAESTHESIA [None]
  - NIGHTMARE [None]
  - DYSGEUSIA [None]
  - SUICIDAL IDEATION [None]
  - PALPITATIONS [None]
  - MIGRAINE [None]
  - PRURITUS [None]
  - DRY EYE [None]
  - TREMOR [None]
  - CRYING [None]
  - PANIC ATTACK [None]
  - MUSCLE RIGIDITY [None]
  - FORMICATION [None]
  - CONVULSION [None]
  - TINNITUS [None]
  - NAUSEA [None]
